FAERS Safety Report 4635103-X (Version None)
Quarter: 2005Q2

REPORT INFORMATION
  Report Type: 
  Country: None (occurrence: None)
  Receive Date: 20050414
  Receipt Date: 20041006
  Transmission Date: 20051028
  Serious: Yes (Other)
  Sender: FDA-Public Use
  Company Number: FR-BRISTOL-MYERS SQUIBB COMPANY-12726410

PATIENT

DRUGS (5)
  1. REYATAZ [Suspect]
     Indication: HIV INFECTION
     Dosage: THERAPY WAS DISCONTINUED ON AN UNSPECIFIED DATE AND REINTRODUCED AFTER CHEMOTHERAPY WAS STOPPED.
     Route: 048
  2. BLEOMYCIN [Concomitant]
     Indication: HODGKIN'S DISEASE
  3. ADRIAMYCIN PFS [Concomitant]
     Indication: HODGKIN'S DISEASE
  4. VINBLASTINE SULFATE [Concomitant]
     Indication: HODGKIN'S DISEASE
  5. DETICENE [Concomitant]
     Indication: HODGKIN'S DISEASE

REACTIONS (3)
  - APLASIA [None]
  - HYPERBILIRUBINAEMIA [None]
  - ILEUS [None]
